FAERS Safety Report 5119761-1 (Version None)
Quarter: 2006Q3

REPORT INFORMATION
  Report Type: 
  Country: None (occurrence: None)
  Receive Date: 20060928
  Receipt Date: 20060921
  Transmission Date: 20061208
  Serious: Yes (Other)
  Sender: FDA-Public Use
  Company Number: 2006113558

PATIENT
  Age: 77 Year
  Sex: Male

DRUGS (2)
  1. LIPITOR [Suspect]
     Dosage: 10 MG
  2. PREDNISONE TAB [Concomitant]

REACTIONS (3)
  - ARTHRITIS [None]
  - MUSCLE ATROPHY [None]
  - MUSCULAR WEAKNESS [None]
